FAERS Safety Report 10389926 (Version 1)
Quarter: 2014Q3

REPORT INFORMATION
  Report Type: Spontaneous
  Country: DE (occurrence: None)
  Receive Date: 20140813
  Receipt Date: 20140813
  Transmission Date: 20150326
  Serious: Yes (Death)
  Sender: FDA-Public Use
  Company Number: IMP_07813_2014

PATIENT
  Age: 54 Year
  Sex: Male

DRUGS (7)
  1. THYROXINE [Suspect]
     Active Substance: LEVOTHYROXINE
     Indication: PRODUCT USED FOR UNKNOWN INDICATION
     Dosage: DF
  2. HYDROCHLOROTHIAZIDE. [Concomitant]
     Active Substance: HYDROCHLOROTHIAZIDE
  3. ISOFLURANE. [Concomitant]
     Active Substance: ISOFLURANE
  4. ISOSORBIDE DINITRATE. [Suspect]
     Active Substance: ISOSORBIDE DINITRATE
     Indication: PRODUCT USED FOR UNKNOWN INDICATION
     Dosage: DF
  5. TRIAMTEREN [Concomitant]
     Active Substance: TRIAMTERENE
  6. VALPROIC ACID. [Suspect]
     Active Substance: VALPROIC ACID
     Indication: EPILEPSY
     Dosage: DF
  7. THIOPENTAL [Suspect]
     Active Substance: THIOPENTAL
     Indication: PRODUCT USED FOR UNKNOWN INDICATION
     Dosage: DF

REACTIONS (2)
  - Drug interaction [None]
  - Hepatic failure [None]
